FAERS Safety Report 5627394-3 (Version None)
Quarter: 2008Q1

REPORT INFORMATION
  Report Type: 
  Country: None (occurrence: None)
  Receive Date: 20080215
  Receipt Date: 20080213
  Transmission Date: 20080703
  Serious: Yes (Hospitalization, Other)
  Sender: FDA-Public Use
  Company Number: KR-BRISTOL-MYERS SQUIBB COMPANY-14058754

PATIENT
  Age: 49 Year
  Sex: Female

DRUGS (2)
  1. BARACLUDE [Suspect]
     Indication: HEPATITIS B
     Route: 048
     Dates: start: 20070829
  2. ENOXAPARIN SODIUM [Concomitant]
     Indication: EMBOLISM
     Dosage: 50MG / DAY FROM 10FEB08
     Route: 042
     Dates: start: 20080128, end: 20080209

REACTIONS (3)
  - BRONCHIAL HAEMORRHAGE [None]
  - OESOPHAGEAL HAEMORRHAGE [None]
  - PULMONARY EMBOLISM [None]
